FAERS Safety Report 4585338-X (Version None)
Quarter: 2005Q1

REPORT INFORMATION
  Report Type: 
  Country: None (occurrence: None)
  Receive Date: 20050214
  Receipt Date: 20050201
  Transmission Date: 20050727
  Serious: Yes (Hospitalization, Other)
  Sender: FDA-Public Use
  Company Number: 2005019624

PATIENT
  Age: 70 Year
  Sex: Female
  Weight: 64.4108 kg

DRUGS (6)
  1. BEXTRA [Suspect]
     Indication: OSTEOARTHRITIS
     Dosage: 10 MG (10 MG , 1 IN 1 D), ORAL
     Route: 048
     Dates: start: 20040201, end: 20040201
  2. CELEBREX [Suspect]
     Indication: OSTEOARTHRITIS
     Dosage: (200 MG ), ORAL
     Route: 048
     Dates: start: 19970101, end: 20040701
  3. LEVOTHYROXINE SODIUM [Concomitant]
  4. ALENDORNATE SODIUM (ALENDORNATE SODIUM) [Concomitant]
  5. DYAZIDE [Concomitant]
  6. AMLODIPINE BESILAE (AMLODIPINE BESILATE) [Concomitant]

REACTIONS (13)
  - ANGINA PECTORIS [None]
  - ARTHRALGIA [None]
  - BACK PAIN [None]
  - BLOOD POTASSIUM DECREASED [None]
  - BUNDLE BRANCH BLOCK RIGHT [None]
  - CYANOSIS [None]
  - DRUG EFFECT DECREASED [None]
  - FEELING ABNORMAL [None]
  - HEART RATE IRREGULAR [None]
  - MEDICATION ERROR [None]
  - MYOCARDIAL INFARCTION [None]
  - PAIN IN EXTREMITY [None]
  - VENTRICULAR EXTRASYSTOLES [None]
